FAERS Safety Report 26035560 (Version 1)
Quarter: 2025Q4

REPORT INFORMATION
  Report Type: Spontaneous
  Country: US (occurrence: US)
  Receive Date: 20251112
  Receipt Date: 20251112
  Transmission Date: 20260117
  Serious: Yes (Hospitalization, Other)
  Sender: CIPLA
  Company Number: US-CIPLA (EU) LIMITED-2025US14022

PATIENT

DRUGS (5)
  1. AZACITIDINE [Suspect]
     Active Substance: AZACITIDINE
     Indication: Myelodysplastic syndrome
     Dosage: 75 MILLIGRAM/SQ. METER (ALSO REPORTED AS 188 MG), ON DAY 1 TO DAY 7
     Route: 042
     Dates: start: 20251021
  2. VORSETUZUMAB [Suspect]
     Active Substance: VORSETUZUMAB
     Indication: Myelodysplastic syndrome
     Dosage: 2650 MILLIGRAM, ON DAY 1 AND DAY 15
     Route: 042
     Dates: start: 20251021
  3. LASIX [Concomitant]
     Active Substance: FUROSEMIDE
     Indication: Diuretic therapy
     Dosage: 20 MILLIGRAM
     Route: 042
     Dates: start: 20251022
  4. LASIX [Concomitant]
     Active Substance: FUROSEMIDE
     Dosage: 20 MILLIGRAM, ANOTHER 20 MG OF FUROSEMIDE
     Route: 042
     Dates: start: 20251023
  5. DUONEB [Concomitant]
     Active Substance: ALBUTEROL SULFATE\IPRATROPIUM BROMIDE
     Indication: Dyspnoea
     Dosage: UNK
     Route: 045
     Dates: start: 20251022

REACTIONS (1)
  - Hypoxia [Not Recovered/Not Resolved]

NARRATIVE: CASE EVENT DATE: 20251023
